FAERS Safety Report 7475302-5 (Version None)
Quarter: 2011Q2

REPORT INFORMATION
  Report Type: 
  Country: None (occurrence: None)
  Receive Date: 20110512
  Receipt Date: 20110506
  Transmission Date: 20111010
  Serious: Yes (Death, Hospitalization)
  Sender: FDA-Public Use
  Company Number: JP-CELGENEUS-087-21880-11021998

PATIENT
  Sex: Male

DRUGS (29)
  1. LOXONIN [Concomitant]
     Dosage: 60 MILLIGRAM
     Route: 048
     Dates: start: 20101112, end: 20101207
  2. ASPIRIN [Concomitant]
     Dosage: 100 MILLIGRAM
     Route: 048
     Dates: start: 20101211, end: 20110323
  3. VOLTAREN [Concomitant]
     Dosage: ADEQUATE DOSE
     Route: 048
     Dates: start: 20101203, end: 20101207
  4. REVLIMID [Suspect]
     Indication: MULTIPLE MYELOMA
     Dosage: 10 MILLIGRAM
     Route: 048
     Dates: start: 20101113, end: 20101203
  5. DEXART [Concomitant]
     Indication: MULTIPLE MYELOMA
     Dosage: 40 MILLIGRAM
     Route: 051
     Dates: start: 20110213, end: 20110216
  6. ALLOPURINOL [Concomitant]
     Indication: HYPERURICAEMIA
     Dosage: 200 MILLIGRAM
     Route: 048
     Dates: start: 20101211, end: 20110323
  7. PARIET [Concomitant]
     Dosage: 10 MILLIGRAM
     Route: 048
     Dates: start: 20101211, end: 20110323
  8. PAMORELIN HYDROCHLORIDE [Concomitant]
     Indication: RENAL IMPAIRMENT
     Dosage: 500 MILLILITER
     Route: 041
     Dates: start: 20110210, end: 20110221
  9. OXINORM [Concomitant]
     Dosage: 2.5 MILLIGRAM
     Route: 048
     Dates: start: 20110302, end: 20110313
  10. OXYCONTIN [Concomitant]
     Dosage: 10 MILLIGRAM
     Route: 048
     Dates: start: 20110308, end: 20110322
  11. REVLIMID [Suspect]
     Dosage: 15 MILLIGRAM
     Route: 048
     Dates: start: 20110228, end: 20110320
  12. DEXAMETHASONE [Suspect]
     Dosage: 5.7143 MILLIGRAM
     Route: 048
     Dates: start: 20110228, end: 20110321
  13. DEXART [Concomitant]
     Dosage: 40 MILLIGRAM
     Route: 051
     Dates: start: 20110218, end: 20110221
  14. ALLOPURINOL [Concomitant]
     Dosage: 200 MILLIGRAM
     Route: 048
     Dates: start: 20110218, end: 20110221
  15. REVLIMID [Suspect]
     Dosage: 15 MILLIGRAM
     Route: 048
     Dates: start: 20101211, end: 20101224
  16. DEXAMETHASONE [Suspect]
     Dosage: 40 MILLIGRAM
     Route: 048
     Dates: start: 20101204, end: 20101204
  17. LOXONIN [Concomitant]
     Dosage: 60 MILLIGRAM
     Route: 048
     Dates: start: 20101211, end: 20110323
  18. SODIUM CHLORIDE [Concomitant]
     Indication: RENAL IMPAIRMENT
     Dosage: 500 MILLILITER
     Route: 041
     Dates: start: 20101027, end: 20101115
  19. ELCITONIN [Concomitant]
     Dosage: 40U
     Route: 041
     Dates: start: 20110210, end: 20110212
  20. DEXAMETHASONE [Suspect]
     Dosage: 40 MILLIGRAM
     Route: 048
     Dates: start: 20101120, end: 20101120
  21. PARIET [Concomitant]
     Indication: PROPHYLAXIS
     Dosage: 10 MILLIGRAM
     Route: 048
     Dates: start: 20101105, end: 20101207
  22. SOLDEM 3A [Concomitant]
     Indication: PROPHYLAXIS
     Dosage: 500 MILLILITER
     Route: 041
     Dates: start: 20110213, end: 20110221
  23. DEXAMETHASONE [Suspect]
     Indication: MULTIPLE MYELOMA
     Dosage: 40 MILLIGRAM
     Route: 048
     Dates: start: 20101113, end: 20101113
  24. DEXAMETHASONE [Suspect]
     Dosage: 40 MILLIGRAM
     Route: 048
     Dates: start: 20101127, end: 20101127
  25. ASPIRIN [Concomitant]
     Indication: PROPHYLAXIS
     Dosage: 100 MILLIGRAM
     Route: 048
     Dates: start: 20101130, end: 20101207
  26. MAGMITT [Concomitant]
     Indication: PROPHYLAXIS
     Dosage: 1980 MILLIGRAM
     Route: 048
     Dates: start: 20101217, end: 20110108
  27. ZOMETA [Concomitant]
     Dosage: 4 MILLIGRAM
     Route: 041
     Dates: start: 20110210, end: 20110210
  28. LYRICA [Concomitant]
     Dosage: 150 MILLIGRAM
     Route: 048
     Dates: start: 20101130, end: 20101207
  29. LYRICA [Concomitant]
     Dosage: 150 MILLIGRAM
     Route: 048
     Dates: start: 20101211, end: 20110108

REACTIONS (8)
  - PLATELET COUNT DECREASED [None]
  - SEPTIC SHOCK [None]
  - PNEUMONIA [None]
  - WHITE BLOOD CELL COUNT DECREASED [None]
  - CARDIAC FAILURE [None]
  - INFLUENZA [None]
  - THROMBOCYTOPENIA [None]
  - PNEUMONIA INFLUENZAL [None]
